FAERS Safety Report 5976719-8 (Version None)
Quarter: 2008Q4

REPORT INFORMATION
  Report Type: 
  Country: None (occurrence: None)
  Receive Date: 20081128
  Receipt Date: 20081113
  Transmission Date: 20090506
  Serious: Yes (Disabling, Other)
  Sender: FDA-Public Use
  Company Number: CERZ-1000421

PATIENT
  Age: 58 Year
  Sex: Female
  Weight: 85 kg

DRUGS (1)
  1. CEREZYME [Suspect]
     Indication: GAUCHER'S DISEASE
     Dosage: 2400 U, Q2W, INTRAVENOUS
     Route: 042
     Dates: start: 20021001

REACTIONS (14)
  - ANOREXIA [None]
  - ASTHENIA [None]
  - COLONIC POLYP [None]
  - EARLY SATIETY [None]
  - FATIGUE [None]
  - GALLBLADDER DISORDER [None]
  - HELICOBACTER INFECTION [None]
  - INFUSION SITE PAIN [None]
  - MERALGIA PARAESTHETICA [None]
  - NAUSEA [None]
  - SINUS CONGESTION [None]
  - TREMOR [None]
  - VOMITING [None]
  - WEIGHT DECREASED [None]
